FAERS Safety Report 12580276 (Version 3)
Quarter: 2016Q3

REPORT INFORMATION
  Report Type: Spontaneous
  Country: US (occurrence: US)
  Receive Date: 20160721
  Receipt Date: 20160818
  Transmission Date: 20161109
  Serious: Yes (Other)
  Sender: FDA-Public Use
  Company Number: US-BAYER-2016-138061

PATIENT
  Age: 30 Year
  Sex: Female

DRUGS (4)
  1. CLEOCIN [Concomitant]
     Active Substance: CLINDAMYCIN PHOSPHATE
  2. NYSTATIN. [Concomitant]
     Active Substance: NYSTATIN
     Dosage: UNK UNK, BID
     Route: 061
  3. MIRENA [Suspect]
     Active Substance: LEVONORGESTREL
     Indication: MENORRHAGIA
  4. MIRENA [Suspect]
     Active Substance: LEVONORGESTREL
     Indication: CONTRACEPTION
     Dosage: 20 MCG/24HR, CONT
     Route: 015
     Dates: start: 20140110, end: 20160713

REACTIONS (4)
  - Device dislocation [None]
  - Device malfunction [None]
  - Genital haemorrhage [None]
  - Menstruation irregular [None]

NARRATIVE: CASE EVENT DATE: 2016
